FAERS Safety Report 5527326-2 (Version None)
Quarter: 2007Q4

REPORT INFORMATION
  Report Type: 
  Country: None (occurrence: None)
  Receive Date: 20071128
  Receipt Date: 20071122
  Transmission Date: 20080405
  Serious: Yes (Hospitalization)
  Sender: FDA-Public Use
  Company Number: B0496357A

PATIENT
  Age: 40 Year
  Sex: Female
  Weight: 105 kg

DRUGS (6)
  1. TYKERB [Suspect]
     Indication: BREAST CANCER METASTATIC
     Dosage: 1250MG PER DAY
     Route: 048
     Dates: start: 20070416
  2. CAPECITABINE [Suspect]
     Indication: BREAST CANCER METASTATIC
     Route: 048
     Dates: start: 20070416
  3. GARDENAL [Concomitant]
     Indication: CONVULSION
  4. DEPAKENE [Concomitant]
     Indication: CONVULSION
  5. ZOMETA [Concomitant]
     Route: 042
     Dates: start: 20040801
  6. PREVISCAN [Concomitant]
     Dates: start: 20060101

REACTIONS (2)
  - HAEMOLYTIC ANAEMIA [None]
  - PANCYTOPENIA [None]
